FAERS Safety Report 9531568 (Version 1)
Quarter: 2013Q3

REPORT INFORMATION
  Report Type: Spontaneous
  Country: CA (occurrence: CA)
  Receive Date: 20130918
  Receipt Date: 20130918
  Transmission Date: 20140515
  Serious: Yes (Other)
  Sender: FDA-Public Use
  Company Number: CA-PFIZER INC-2013268351

PATIENT
  Sex: Male

DRUGS (5)
  1. MORPHINE SULFATE [Suspect]
     Dosage: UNKNOWN
     Route: 065
  2. EFFEXOR XR [Suspect]
     Dosage: UNK
     Route: 065
  3. DILAUDID [Suspect]
  4. MARIJUANA [Suspect]
     Dosage: UNK
     Route: 065
  5. RITALIN [Suspect]
     Dosage: UNK
     Route: 065

REACTIONS (4)
  - Substance abuse [Unknown]
  - Aggression [Unknown]
  - Sexually inappropriate behaviour [Unknown]
  - Euphoric mood [Unknown]
